FAERS Safety Report 12521249 (Version 3)
Quarter: 2016Q3

REPORT INFORMATION
  Report Type: Spontaneous
  Country: JP (occurrence: JP)
  Receive Date: 20160701
  Receipt Date: 20160718
  Transmission Date: 20161109
  Serious: Yes (Hospitalization)
  Sender: FDA-Public Use
  Company Number: PHJP2016JP017327

PATIENT
  Age: 47 Year
  Sex: Female
  Weight: 46 kg

DRUGS (7)
  1. TEGRETOL [Suspect]
     Active Substance: CARBAMAZEPINE
     Indication: EPILEPSY
     Dosage: 100 MG, QD
     Route: 048
     Dates: start: 20160513, end: 20160519
  2. TEGRETOL [Suspect]
     Active Substance: CARBAMAZEPINE
     Dosage: 100 MG, BID
     Route: 048
     Dates: start: 20160520, end: 20160527
  3. TOCOPHEROL [Suspect]
     Active Substance: TOCOPHEROL
     Indication: SCLERODERMA
     Dosage: UNK
     Route: 065
  4. AMLODIPINE [Suspect]
     Active Substance: AMLODIPINE BESYLATE
     Indication: HYPERTENSION
     Dosage: UNK
     Route: 048
  5. PRORNER [Suspect]
     Active Substance: BERAPROST SODIUM
     Indication: SCLERODERMA
     Dosage: UNK
     Route: 065
  6. BAYASPIRIN [Suspect]
     Active Substance: ASPIRIN
     Indication: CEREBRAL INFARCTION
     Dosage: UNK
     Route: 065
  7. CYTOTEC [Suspect]
     Active Substance: MISOPROSTOL
     Indication: PRODUCT USED FOR UNKNOWN INDICATION
     Dosage: UNK
     Route: 065

REACTIONS (4)
  - Conjunctival haemorrhage [Unknown]
  - Generalised erythema [Unknown]
  - Stevens-Johnson syndrome [Recovering/Resolving]
  - Pyrexia [Unknown]

NARRATIVE: CASE EVENT DATE: 20160513
